FAERS Safety Report 6317337-1 (Version None)
Quarter: 2009Q3

REPORT INFORMATION
  Report Type: 
  Country: None (occurrence: None)
  Receive Date: 20090821
  Receipt Date: 20090813
  Transmission Date: 20100115
  Serious: Yes (Hospitalization)
  Sender: FDA-Public Use
  Company Number: US-BIOGENIDEC-2009BI020580

PATIENT
  Age: 53 Year
  Sex: Female

DRUGS (3)
  1. AVONEX [Suspect]
     Indication: MULTIPLE SCLEROSIS
     Route: 030
  2. AVONEX [Suspect]
     Route: 030
     Dates: start: 20000101
  3. REBIF [Concomitant]

REACTIONS (5)
  - COLITIS [None]
  - DRUG INTERACTION [None]
  - LETHARGY [None]
  - PNEUMONIA [None]
  - URINARY TRACT INFECTION [None]
